FAERS Safety Report 15260023 (Version 6)
Quarter: 2019Q4

REPORT INFORMATION
  Report Type: Spontaneous
  Country: US (occurrence: US)
  Receive Date: 20180809
  Receipt Date: 20191004
  Transmission Date: 20200122
  Serious: Yes (Death, Hospitalization, Other)
  Sender: FDA-Public Use
  Company Number: US-PFIZER INC-2018318593

PATIENT
  Age: 85 Year
  Sex: Male
  Weight: 81.65 kg

DRUGS (2)
  1. BOSULIF [Suspect]
     Active Substance: BOSUTINIB MONOHYDRATE
     Dosage: 500 MG, DAILY
     Dates: start: 201901
  2. BOSULIF [Suspect]
     Active Substance: BOSUTINIB MONOHYDRATE
     Indication: CHRONIC MYELOID LEUKAEMIA
     Dosage: 100 MG, UNK

REACTIONS (11)
  - Acute kidney injury [Unknown]
  - Pancreatitis [Fatal]
  - Malaise [Unknown]
  - Cough [Recovering/Resolving]
  - White blood cell count increased [Unknown]
  - Gastrooesophageal reflux disease [Unknown]
  - Cerebrovascular accident [Unknown]
  - Pulmonary oedema [Fatal]
  - Nasopharyngitis [Recovered/Resolved]
  - Vomiting [Unknown]
  - White blood cell count decreased [Unknown]

NARRATIVE: CASE EVENT DATE: 20190115
